FAERS Safety Report 10254436 (Version 2)
Quarter: 2014Q2

REPORT INFORMATION
  Report Type: Spontaneous
  Country: US (occurrence: US)
  Receive Date: 20140624
  Receipt Date: 20140630
  Transmission Date: 20141212
  Serious: No
  Sender: FDA-Public Use
  Company Number: US-BIOGENIDEC-2014BI058722

PATIENT
  Age: 51 Year
  Sex: Female

DRUGS (2)
  1. AVONEX [Suspect]
     Indication: MULTIPLE SCLEROSIS
     Route: 030
     Dates: start: 20010301
  2. AVONEX [Suspect]
     Indication: MULTIPLE SCLEROSIS
     Route: 030
     Dates: start: 20040804, end: 20140520

REACTIONS (4)
  - Mobility decreased [Not Recovered/Not Resolved]
  - Asthenia [Unknown]
  - Muscular weakness [Not Recovered/Not Resolved]
  - Drug ineffective [Not Recovered/Not Resolved]
